FAERS Safety Report 10369510 (Version 1)
Quarter: 2014Q3

REPORT INFORMATION
  Report Type: Spontaneous
  Country: US (occurrence: US)
  Receive Date: 20140807
  Receipt Date: 20140807
  Transmission Date: 20150326
  Serious: Yes (Death, Other)
  Sender: FDA-Public Use
  Company Number: US-GILEAD-2014-0111414

PATIENT
  Age: 73 Year
  Sex: Female

DRUGS (8)
  1. LETAIRIS [Suspect]
     Active Substance: AMBRISENTAN
     Indication: PULMONARY HYPERTENSION
     Route: 065
     Dates: start: 20140625, end: 20140729
  2. LOVASTATIN. [Concomitant]
     Active Substance: LOVASTATIN
  3. BROVANA [Concomitant]
     Active Substance: ARFORMOTEROL TARTRATE
  4. AMIODARONE [Concomitant]
     Active Substance: AMIODARONE
  5. DILTIAZEM [Concomitant]
     Active Substance: DILTIAZEM
  6. ESZOPICLONE. [Concomitant]
     Active Substance: ESZOPICLONE
  7. FUROSEMIDE. [Concomitant]
     Active Substance: FUROSEMIDE
  8. WARFARIN [Concomitant]
     Active Substance: WARFARIN

REACTIONS (1)
  - Death [Fatal]

NARRATIVE: CASE EVENT DATE: 20140729
